FAERS Safety Report 8348756-X (Version None)
Quarter: 2012Q2

REPORT INFORMATION
  Report Type: 
  Country: None (occurrence: None)
  Receive Date: 20120510
  Receipt Date: 20120504
  Transmission Date: 20120825
  Serious: No
  Sender: FDA-Public Use
  Company Number: US-PFIZER INC-2012111063

PATIENT
  Sex: Female

DRUGS (5)
  1. TOPROL-XL [Concomitant]
     Dosage: UNK
  2. DEXILANT [Concomitant]
     Indication: GASTROOESOPHAGEAL REFLUX DISEASE
     Dosage: UNK
  3. TEMAZEPAM [Concomitant]
     Dosage: UNK
  4. LIPITOR [Suspect]
     Dosage: UNK
  5. NEURONTIN [Suspect]
     Dosage: 400 MG, 3X/DAY

REACTIONS (3)
  - HEADACHE [None]
  - PAIN [None]
  - ABDOMINAL DISCOMFORT [None]
